FAERS Safety Report 8171368-8 (Version None)
Quarter: 2012Q1

REPORT INFORMATION
  Report Type: 
  Country: None (occurrence: None)
  Receive Date: 20120228
  Receipt Date: 20120220
  Transmission Date: 20120608
  Serious: Yes (Life-Threatening)
  Sender: FDA-Public Use
  Company Number: DE-PFIZER INC-2012007287

PATIENT
  Age: 47 Year
  Sex: Female

DRUGS (16)
  1. KALINOR RETARD [Concomitant]
  2. AMIODARONE HCL [Suspect]
     Indication: TACHYARRHYTHMIA
     Dosage: 200 MG, 1X/DAY
     Route: 048
     Dates: start: 20090301
  3. BACLOFEN [Suspect]
     Indication: MUSCLE SPASTICITY
     Dosage: 25 MG, 2X/DAY
     Dates: start: 20081201
  4. FUROSEMIDE [Concomitant]
  5. MAGNESIUM [Concomitant]
  6. AMOXICILLIN [Concomitant]
     Dosage: UNK
     Dates: start: 20110308
  7. DANTROLENE SODIUM [Suspect]
     Dosage: 25 MG, 3X/DAY
     Route: 048
  8. METOCLOPRAMIDE HYDROCHLORIDE [Concomitant]
  9. ACETYLCYSTEINE [Concomitant]
  10. METAMIZOLE SODIUM [Concomitant]
  11. DANTROLENE SODIUM [Suspect]
     Indication: MUSCLE SPASTICITY
     Dosage: 50 MG, 4X/DAY
     Dates: start: 20081201
  12. MARCUMAR [Concomitant]
     Dosage: UNK
     Dates: start: 20081201
  13. TRIMIPRAMINE MALEATE [Suspect]
     Indication: DEPRESSION
     Dosage: 25 MG, 1X/DAY
     Route: 048
  14. BACLOFEN [Suspect]
     Dosage: 25 MG, 2X/DAY
     Route: 048
  15. FERROUS SULFATE TAB [Concomitant]
     Dosage: UNK
     Dates: start: 20081201
  16. OMEPRAZOLE [Concomitant]

REACTIONS (1)
  - HYPONATRAEMIA [None]
